FAERS Safety Report 14304239 (Version 1)
Quarter: 2017Q4

REPORT INFORMATION
  Report Type: Spontaneous
  Country: IT (occurrence: IT)
  Receive Date: 20171219
  Receipt Date: 20171219
  Transmission Date: 20180321
  Serious: Yes (Other)
  Sender: FDA-Public Use
  Company Number: IT-MYLANLABS-2017M1079442

PATIENT
  Age: 16 Year
  Sex: Female

DRUGS (3)
  1. IMATINIB [Suspect]
     Active Substance: IMATINIB
     Indication: MORPHOEA
     Dosage: 200 MG, QD
  2. METHOTREXATE. [Suspect]
     Active Substance: METHOTREXATE
     Indication: MORPHOEA
     Dosage: 15 MG/M2, QD
  3. PREDNISONE. [Suspect]
     Active Substance: PREDNISONE
     Indication: MORPHOEA
     Dosage: 2 MG/KG, QD

REACTIONS (4)
  - Morphoea [Unknown]
  - Therapy non-responder [Unknown]
  - Disease progression [Unknown]
  - Product use in unapproved indication [Unknown]
